FAERS Safety Report 9333273 (Version 2)
Quarter: 2013Q4

REPORT INFORMATION
  Report Type: Spontaneous
  Country: GB (occurrence: None)
  Receive Date: 20130604
  Receipt Date: 20131022
  Transmission Date: 20140711
  Serious: Yes (Hospitalization)
  Sender: FDA-Public Use
  Company Number: AUR-APL-2013-04322

PATIENT
  Age: 47 Year
  Sex: Female

DRUGS (9)
  1. QUETIAPINE (QUETIAPINE) (QUETIAPINE) [Suspect]
     Indication: PRODUCT USED FOR UNKNOWN INDICATION
  2. ATORVASTATIN (ATORVASTATIN) [Suspect]
     Indication: HEREDITARY DISORDER
     Dates: start: 20121218
  3. CALCIUM AND VITAMIN D [Concomitant]
  4. CIPRALEX [Concomitant]
  5. CYANOCOBALAMIN [Concomitant]
  6. FOLIC ACID [Concomitant]
  7. LITHIUM [Concomitant]
  8. PIRITON [Concomitant]
  9. PREDNISOLONE [Concomitant]

REACTIONS (4)
  - Loss of consciousness [None]
  - Dyspnoea [None]
  - Swelling face [None]
  - Drug hypersensitivity [None]
